FAERS Safety Report 10928549 (Version 1)
Quarter: 2015Q1

REPORT INFORMATION
  Report Type: Spontaneous
  Country: US (occurrence: None)
  Receive Date: 20150317
  Receipt Date: 20150317
  Transmission Date: 20150721
  Serious: Yes (Other)
  Sender: FDA-Public Use
  Company Number: None

PATIENT
  Age: 58 Year
  Sex: Male

DRUGS (12)
  1. SOVALDI [Suspect]
     Active Substance: SOFOSBUVIR
     Indication: CHRONIC HEPATITIS C
     Route: 048
     Dates: start: 20150220
  2. MAGNESIIUM [Concomitant]
  3. VITAMIN D [Concomitant]
     Active Substance: CHOLECALCIFEROL
  4. SPRONOLACT [Concomitant]
  5. POTASSIIUM [Concomitant]
  6. MAGNESIUM [Concomitant]
     Active Substance: MAGNESIUM
  7. FUROSEMIDE. [Concomitant]
     Active Substance: FUROSEMIDE
  8. B12 ACTIVE [Concomitant]
  9. RIBAVIRIN. [Concomitant]
     Active Substance: RIBAVIRIN
  10. SOVALDI [Concomitant]
     Active Substance: SOFOSBUVIR
  11. B6 NATURAL [Concomitant]
  12. MILK THISTLE [Concomitant]
     Active Substance: MILK THISTLE

REACTIONS (1)
  - Irritability [None]

NARRATIVE: CASE EVENT DATE: 201502
